FAERS Safety Report 9298809 (Version 1)
Quarter: 2013Q1

REPORT INFORMATION
  Report Type: Spontaneous
  Country: US (occurrence: None)
  Receive Date: 20121227
  Receipt Date: 20121227
  Transmission Date: 20140127
  Serious: Yes (Other)
  Sender: FDA-Public Use
  Company Number: PHEH2012US014970

PATIENT
  Age: 36 Year
  Sex: Female

DRUGS (2)
  1. AFINITOR [Suspect]
     Indication: TUBEROUS SCLEROSIS
     Route: 048
     Dates: start: 20120711
  2. LISINOPRIL (LISINOPRIL) [Concomitant]

REACTIONS (11)
  - Blood cholesterol increased [None]
  - Lymphadenopathy [None]
  - Pain [None]
  - Migraine [None]
  - Acne [None]
  - Mouth ulceration [None]
  - Arthralgia [None]
  - Diarrhoea [None]
  - Epistaxis [None]
  - Vomiting [None]
  - Blood pressure increased [None]
